FAERS Safety Report 15475938 (Version 1)
Quarter: 2018Q4

REPORT INFORMATION
  Report Type: Spontaneous
  Country: DE (occurrence: DE)
  Receive Date: 20181009
  Receipt Date: 20181009
  Transmission Date: 20190205
  Serious: Yes (Other)
  Sender: FDA-Public Use
  Company Number: PHHY2018DE117034

PATIENT
  Age: 43 Year
  Sex: Female

DRUGS (4)
  1. PACLITAXEL. [Suspect]
     Active Substance: PACLITAXEL
     Indication: BREAST CANCER
     Dosage: 80 MG/M2, QW
     Route: 065
  2. HERCEPTIN [Suspect]
     Active Substance: TRASTUZUMAB
     Indication: BREAST CANCER
     Dosage: 6 MG/KG, Q3W
     Route: 065
  3. PERJETA [Suspect]
     Active Substance: PERTUZUMAB
     Indication: BREAST CANCER
     Dosage: 420 MG, Q3W
     Route: 065
  4. PACLITAX NAB [Suspect]
     Active Substance: PACLITAXEL
     Indication: BREAST CANCER
     Route: 065

REACTIONS (7)
  - Hypersensitivity [Unknown]
  - Erythema [Unknown]
  - Dermatitis allergic [Unknown]
  - Iron deficiency anaemia [Unknown]
  - Neuropathy peripheral [Unknown]
  - Pain [Unknown]
  - Alanine aminotransferase increased [Unknown]
